FAERS Safety Report 8553666-9 (Version None)
Quarter: 2012Q3

REPORT INFORMATION
  Report Type: 
  Country: None (occurrence: None)
  Receive Date: 20120731
  Receipt Date: 20071026
  Transmission Date: 20120928
  Serious: Yes (Other)
  Sender: FDA-Public Use
  Company Number: CO-PFIZER INC-2012182770

PATIENT
  Age: 69 Year
  Sex: Female

DRUGS (5)
  1. GLIBENCLAMIDE [Concomitant]
     Dosage: 5 MG, 2X/DAY
  2. LIPITOR [Suspect]
     Dosage: 10 MG, 1X/DAY
  3. METFORMIN [Concomitant]
     Dosage: 850 MG, 2X/DAY
  4. ACETYLSALICYLIC ACID [Concomitant]
     Dosage: 100 MG, 1X/DAY
  5. ACCUPRIL [Suspect]
     Dosage: 20 MG, 1X/DAY

REACTIONS (2)
  - ANGIOPATHY [None]
  - HEADACHE [None]
